FAERS Safety Report 4723957-8 (Version None)
Quarter: 2005Q3

REPORT INFORMATION
  Report Type: 
  Country: None (occurrence: None)
  Receive Date: 20050721
  Receipt Date: 20050705
  Transmission Date: 20060218
  Serious: Yes (Other)
  Sender: FDA-Public Use
  Company Number: 2005100512

PATIENT
  Age: 49 Year
  Weight: 235.5 kg

DRUGS (4)
  1. CELEBREX [Suspect]
     Indication: BACK PAIN
     Dosage: 400 MG (200 MG, 2 IN 1); UNKNOWN
     Dates: start: 20011128
  2. BEXTRA [Suspect]
     Indication: SHOULDER PAIN
     Dates: start: 20040408
  3. NEXIUM [Concomitant]
  4. DARVOCET [Concomitant]

REACTIONS (14)
  - ACUTE MYOCARDIAL INFARCTION [None]
  - BLOOD PRESSURE INCREASED [None]
  - BODY TEMPERATURE DECREASED [None]
  - BRONCHITIS [None]
  - CORONARY ARTERY DISEASE [None]
  - DEPRESSION [None]
  - DRUG INEFFECTIVE [None]
  - EXTERNAL EAR CELLULITIS [None]
  - HYPERLIPIDAEMIA [None]
  - LARYNGITIS [None]
  - OEDEMA PERIPHERAL [None]
  - SHOULDER PAIN [None]
  - SINUSITIS [None]
  - VENTRICULAR HYPERTROPHY [None]
